FAERS Safety Report 8300609-9 (Version None)
Quarter: 2012Q2

REPORT INFORMATION
  Report Type: 
  Country: None (occurrence: None)
  Receive Date: 20120420
  Receipt Date: 20120410
  Transmission Date: 20120825
  Serious: Yes (Hospitalization)
  Sender: FDA-Public Use
  Company Number: PHHY2012KR000832

PATIENT
  Sex: Male
  Weight: 71 kg

DRUGS (1)
  1. EXJADE [Suspect]
     Indication: APLASTIC ANAEMIA
     Dosage: 1500 MG, UNK
     Route: 048
     Dates: start: 20091127

REACTIONS (3)
  - PAIN [None]
  - ROAD TRAFFIC ACCIDENT [None]
  - HAEMOGLOBIN DECREASED [None]
